FAERS Safety Report 6154072-7 (Version None)
Quarter: 2009Q2

REPORT INFORMATION
  Report Type: 
  Country: None (occurrence: None)
  Receive Date: 20090414
  Receipt Date: 20090408
  Transmission Date: 20091009
  Serious: Yes (Hospitalization)
  Sender: FDA-Public Use
  Company Number: FR-ROCHE-626720

PATIENT
  Sex: Female

DRUGS (3)
  1. ROCEPHIN [Suspect]
     Indication: OSTEITIS
     Route: 058
     Dates: start: 20071023, end: 20071123
  2. RIFAMPICIN [Suspect]
     Indication: OSTEITIS
     Route: 048
     Dates: start: 20071023, end: 20071028
  3. CIPROFLOXACIN HCL [Suspect]
     Indication: OSTEITIS
     Route: 048
     Dates: start: 20071023, end: 20071123

REACTIONS (1)
  - CYTOLYTIC HEPATITIS [None]
